FAERS Safety Report 6847490-2 (Version None)
Quarter: 2010Q3

REPORT INFORMATION
  Report Type: 
  Country: None (occurrence: None)
  Receive Date: 20100716
  Receipt Date: 20100706
  Transmission Date: 20110219
  Serious: Yes (Other)
  Sender: FDA-Public Use
  Company Number: CA-PFIZER INC-2010062062

PATIENT
  Age: 64 Year
  Sex: Female
  Weight: 58.957 kg

DRUGS (13)
  1. CHAMPIX [Suspect]
     Indication: SMOKING CESSATION THERAPY
     Dosage: 0.5 MG, 1X/DAY
  2. CHAMPIX [Suspect]
     Dosage: 0.5 MG, 2X/DAY
  3. CHAMPIX [Suspect]
     Dosage: 1 MG, 1X/DAY
  4. CHAMPIX [Suspect]
     Dosage: 1 MG, 2X/DAY
  5. CELEBREX [Concomitant]
     Indication: OSTEOPOROSIS
     Dosage: 100 MG, 1X/DAY
  6. ACETYLSALICYLIC ACID [Concomitant]
     Indication: PROPHYLAXIS
     Dosage: 81 MG, 1X/DAY
  7. SPIRIVA [Concomitant]
     Indication: CHRONIC OBSTRUCTIVE PULMONARY DISEASE
     Dosage: 18 UG, 1 IN MORNING
     Dates: start: 20100401
  8. FOSAMAX [Concomitant]
     Indication: PROPHYLAXIS
     Dosage: 70 MG, 1 PER WEEK
  9. VITAMIN C [Concomitant]
     Indication: OSTEOPOROSIS
     Dosage: 1.5 G/DAY
  10. VITAMIN B COMPLEX CAP [Concomitant]
     Dosage: 100 ML, PER DAY
  11. VITAMIN E [Concomitant]
     Dosage: 400 IU, UNK
  12. VITAMIN D [Concomitant]
     Dosage: 1000 IU, PER DAY
  13. CALCIUM MAGNESIUM VITAMIN D [Concomitant]
     Dosage: 3 PER DAY

REACTIONS (10)
  - ABDOMINAL PAIN UPPER [None]
  - BACK PAIN [None]
  - CONSTIPATION [None]
  - FACE OEDEMA [None]
  - LIMB DISCOMFORT [None]
  - MALAISE [None]
  - MUSCULOSKELETAL CHEST PAIN [None]
  - NAUSEA [None]
  - PALPITATIONS [None]
  - WITHDRAWAL SYNDROME [None]
